FAERS Safety Report 14082782 (Version 1)
Quarter: 2017Q4

REPORT INFORMATION
  Report Type: Spontaneous
  Country: US (occurrence: US)
  Receive Date: 20171012
  Receipt Date: 20171012
  Transmission Date: 20180321
  Serious: No
  Sender: FDA-Public Use
  Company Number: US-MYLANLABS-2017M1058838

PATIENT
  Sex: Female

DRUGS (1)
  1. ETHINYLESTRADIOL/NORETHISTERONE [Suspect]
     Active Substance: ETHINYL ESTRADIOL\NORETHINDRONE
     Indication: CONTRACEPTION
     Dosage: UNK, QD
     Route: 048

REACTIONS (1)
  - Weight increased [Recovered/Resolved]
